FAERS Safety Report 25399156 (Version 4)
Quarter: 2025Q3

REPORT INFORMATION
  Report Type: Spontaneous
  Country: CA (occurrence: CA)
  Receive Date: 20250605
  Receipt Date: 20250724
  Transmission Date: 20251021
  Serious: Yes (Other)
  Sender: CELLTRION
  Company Number: CA-CELLTRION INC.-2025CA017226

PATIENT

DRUGS (3)
  1. STEQEYMA [Suspect]
     Active Substance: USTEKINUMAB-STBA
     Indication: Crohn^s disease
     Route: 042
     Dates: start: 20250508
  2. STEQEYMA [Suspect]
     Active Substance: USTEKINUMAB-STBA
     Route: 042
     Dates: start: 20250714
  3. PREDNISONE [Concomitant]
     Active Substance: PREDNISONE
     Dates: start: 20250605

REACTIONS (3)
  - Haematochezia [Unknown]
  - Dyschezia [Unknown]
  - Fall [Unknown]

NARRATIVE: CASE EVENT DATE: 20250528
